FAERS Safety Report 5502941-0 (Version None)
Quarter: 2007Q4

REPORT INFORMATION
  Report Type: 
  Country: None (occurrence: None)
  Receive Date: 20071031
  Receipt Date: 20071023
  Transmission Date: 20080405
  Serious: No
  Sender: FDA-Public Use
  Company Number: B0491450A

PATIENT
  Age: 50 Year
  Sex: Female

DRUGS (4)
  1. PAXIL [Suspect]
     Indication: ANXIETY
     Route: 048
     Dates: start: 20050101, end: 20071001
  2. ZYPREXA [Concomitant]
     Route: 048
  3. SOLANAX [Concomitant]
     Route: 048
  4. ROHYPNOL [Concomitant]
     Route: 065

REACTIONS (2)
  - IRRITABILITY [None]
  - TREMOR [None]
